FAERS Safety Report 24654333 (Version 7)
Quarter: 2025Q1

REPORT INFORMATION
  Report Type: Spontaneous
  Country: US (occurrence: US)
  Receive Date: 20241122
  Receipt Date: 20250225
  Transmission Date: 20250409
  Serious: Yes (Hospitalization, Other)
  Sender: IPSEN BIOPHARMACEUTICALS, INC.
  Company Number: US-IPSEN Group, Research and Development-2024-23455

PATIENT
  Age: 57 Year
  Sex: Male

DRUGS (23)
  1. ONIVYDE [Suspect]
     Active Substance: IRINOTECAN HYDROCHLORIDE
     Indication: Colorectal cancer
     Route: 042
     Dates: start: 20240815
  2. ONIVYDE [Suspect]
     Active Substance: IRINOTECAN HYDROCHLORIDE
     Indication: Off label use
     Route: 042
     Dates: start: 20241118
  3. LEUCOVORIN [Suspect]
     Active Substance: LEUCOVORIN\LEUCOVORIN CALCIUM
     Indication: Colorectal cancer
     Route: 042
     Dates: start: 20240815
  4. FLUOROURACIL [Suspect]
     Active Substance: FLUOROURACIL
     Indication: Colorectal cancer
     Route: 042
     Dates: start: 20240815
  5. BEVACIZUMAB [Suspect]
     Active Substance: BEVACIZUMAB
     Indication: Colorectal cancer
     Route: 042
     Dates: start: 20240815
  6. SIREXATAMAB [Suspect]
     Active Substance: SIREXATAMAB
     Indication: Colorectal cancer
     Route: 042
     Dates: start: 20240815
  7. ACETAMINOPHEN [Concomitant]
     Active Substance: ACETAMINOPHEN
     Indication: Abdominal pain
     Dates: start: 20241104, end: 20241106
  8. PIPERACILLIN SODIUM\TAZOBACTAM SODIUM [Concomitant]
     Active Substance: PIPERACILLIN SODIUM\TAZOBACTAM SODIUM
     Dates: start: 20241103, end: 20241106
  9. VANCOMYCIN [Concomitant]
     Active Substance: VANCOMYCIN
     Dates: start: 20241103, end: 20241103
  10. FAMOTIDINE [Concomitant]
     Active Substance: FAMOTIDINE
  11. POTASSIUM CHLORIDE [Concomitant]
     Active Substance: POTASSIUM CHLORIDE
  12. TRAZODONE [Concomitant]
     Active Substance: TRAZODONE HYDROCHLORIDE
     Indication: Prophylaxis
     Route: 048
  13. MAGNESIUM CHLORIDE [Concomitant]
     Active Substance: MAGNESIUM CHLORIDE
     Indication: Prophylaxis against dehydration
     Route: 048
  14. ENOXAPARIN [Concomitant]
     Active Substance: ENOXAPARIN
     Indication: Thrombosis prophylaxis
     Route: 058
  15. ALUMINUM HYDROXIDE\MAGNESIUM HYDROXIDE [Concomitant]
     Active Substance: ALUMINUM HYDROXIDE\MAGNESIUM HYDROXIDE
     Indication: Abdominal pain
  16. BACLOFEN [Concomitant]
     Active Substance: BACLOFEN
     Dates: start: 20240816
  17. DULOXETINE [Concomitant]
     Active Substance: DULOXETINE
     Dates: start: 20240213
  18. FINASTERIDE [Concomitant]
     Active Substance: FINASTERIDE
     Dates: start: 20230601
  19. TAMSULOSIN HYDROCHLORIDE [Concomitant]
     Active Substance: TAMSULOSIN HYDROCHLORIDE
     Dates: start: 20230605
  20. AZITHROMYCIN [Concomitant]
     Active Substance: AZITHROMYCIN
  21. VITAMIN D+K (COLECALCIFEROL, VITAMIN K NOS) [Concomitant]
     Dates: start: 2023
  22. MELATONIN [Concomitant]
     Active Substance: MELATONIN
     Dates: start: 2023
  23. SODIUM CHLORIDE [Concomitant]
     Active Substance: SODIUM CHLORIDE
     Dates: start: 20231103, end: 20231103

REACTIONS (3)
  - Febrile neutropenia [Recovered/Resolved]
  - Enteritis [Recovered/Resolved]
  - Off label use [Unknown]

NARRATIVE: CASE EVENT DATE: 20241103
